FAERS Safety Report 4266084-9 (Version None)
Quarter: 2004Q1

REPORT INFORMATION
  Report Type: 
  Country: None (occurrence: None)
  Receive Date: 20040106
  Receipt Date: 20031222
  Transmission Date: 20041129
  Serious: Yes (Hospitalization, Other)
  Sender: FDA-Public Use
  Company Number: 2002051354

PATIENT
  Age: 77 Year
  Sex: Female

DRUGS (2)
  1. GABAPENTIN [Suspect]
     Indication: PAIN
     Dosage: 3600 MG (DAILY)
  2. SERTRALINE HCL [Concomitant]

REACTIONS (12)
  - ASTERIXIS [None]
  - BLOOD GLUCOSE INCREASED [None]
  - COGNITIVE DISORDER [None]
  - CONFUSIONAL STATE [None]
  - DECREASED ACTIVITY [None]
  - DISTURBANCE IN ATTENTION [None]
  - ENCEPHALOPATHY [None]
  - LACUNAR INFARCTION [None]
  - MEMORY IMPAIRMENT [None]
  - MENTAL DISORDER [None]
  - PERSONALITY CHANGE [None]
  - SENSORY LOSS [None]
